FAERS Safety Report 7529872-9 (Version None)
Quarter: 2011Q2

REPORT INFORMATION
  Report Type: 
  Country: None (occurrence: None)
  Receive Date: 20110607
  Receipt Date: 20110512
  Transmission Date: 20111010
  Serious: Yes (Hospitalization)
  Sender: FDA-Public Use
  Company Number: US-BAYER-2011-016874

PATIENT
  Age: 24 Year
  Sex: Female
  Weight: 82 kg

DRUGS (4)
  1. PRISTIQ [Concomitant]
     Dosage: UNK
     Dates: start: 20080101
  2. YAZ [Suspect]
     Indication: PREMENSTRUAL SYNDROME
  3. YAZ [Suspect]
     Indication: ACNE
     Dosage: UNK
     Route: 048
     Dates: start: 20080723, end: 20090101
  4. TAMIFLU [Concomitant]
     Dosage: UNK
     Dates: start: 20090601

REACTIONS (5)
  - CHOLELITHIASIS [None]
  - GALLBLADDER DISORDER [None]
  - PAIN [None]
  - GALLBLADDER CHOLESTEROLOSIS [None]
  - CHOLECYSTITIS CHRONIC [None]
